FAERS Safety Report 5955918-5 (Version None)
Quarter: 2008Q4

REPORT INFORMATION
  Report Type: 
  Country: None (occurrence: None)
  Receive Date: 20081112
  Receipt Date: 20081105
  Transmission Date: 20090506
  Serious: Yes (Other)
  Sender: FDA-Public Use
  Company Number: 2008S1010980

PATIENT
  Age: 68 Year
  Sex: Male

DRUGS (15)
  1. PHOSPHOSODA FLAVOR NOT SPECIFIED [Suspect]
     Indication: COLONOSCOPY
     Dosage: 45 ML;X1;PO
     Route: 048
     Dates: start: 20060912, end: 20060913
  2. CRESTOR [Concomitant]
  3. AVALIDE [Concomitant]
  4. SYNTHROID [Concomitant]
  5. GLYBURIDE [Concomitant]
  6. METFORMIN ^ALIUD PHARMA^ [Concomitant]
  7. GLUCOSAMINE HYDROCHLORIDE/CHONDROITIN SULFATE [Concomitant]
  8. LYRICA [Concomitant]
  9. TAZTIA [Concomitant]
  10. METANX [Concomitant]
  11. XALATAN [Concomitant]
  12. TIMOPTIC [Concomitant]
  13. GAVISCON [Concomitant]
  14. ASPIRIN [Concomitant]
  15. ALEVE [Concomitant]

REACTIONS (2)
  - RENAL FAILURE ACUTE [None]
  - RENAL FAILURE CHRONIC [None]
